FAERS Safety Report 21483418 (Version 1)
Quarter: 2022Q4

REPORT INFORMATION
  Report Type: Spontaneous
  Country: US (occurrence: US)
  Receive Date: 20221020
  Receipt Date: 20221020
  Transmission Date: 20230113
  Serious: No
  Sender: FDA-Public Use
  Company Number: US-CELLTRION INC.-2022US003127

PATIENT

DRUGS (1)
  1. INFLECTRA [Suspect]
     Active Substance: INFLIXIMAB-DYYB
     Indication: Product used for unknown indication
     Dosage: 410 MG (5 100 MG/20 ML); FREQUENCY: IV DAY 1, DAY 15 FOLLOWED BY 6 WEEKS AND 12 WEEKS
     Route: 042

REACTIONS (1)
  - Unevaluable event [Unknown]
